FAERS Safety Report 26013989 (Version 1)
Quarter: 2025Q4

REPORT INFORMATION
  Report Type: Spontaneous
  Country: EU (occurrence: EU)
  Receive Date: 20251108
  Receipt Date: 20251108
  Transmission Date: 20260118
  Serious: Yes (Hospitalization, Other)
  Sender: AUROBINDO
  Company Number: EU-AEMPS-1767033

PATIENT
  Age: 80 Year
  Sex: Female

DRUGS (4)
  1. OXALIPLATIN [Suspect]
     Active Substance: OXALIPLATIN
     Indication: Pancreatic carcinoma
     Dosage: 85 MILLIGRAM/SQ. METER (85MG/M2 EVERY 14 DAYS)
     Route: 042
     Dates: start: 20250827, end: 20250905
  2. IRINOTECAN [Suspect]
     Active Substance: IRINOTECAN
     Indication: Pancreatic carcinoma
     Dosage: 180 MILLIGRAM/SQ. METER (180MG/M2 EVERY 14 DAYS)
     Route: 042
     Dates: start: 20250827, end: 20250827
  3. FLUOROURACIL [Suspect]
     Active Substance: FLUOROURACIL
     Indication: Pancreatic carcinoma
     Dosage: EVERY 14 DAYS
     Route: 042
     Dates: start: 20250827, end: 20250827
  4. LEUCOVORIN CALCIUM [Concomitant]
     Active Substance: LEUCOVORIN CALCIUM
     Indication: Pancreatic carcinoma
     Dosage: 400 MG/M2 (400MG/M2 EVERY 14 DAYS)
     Route: 042
     Dates: start: 20250827, end: 20250827

REACTIONS (2)
  - Gastroenteritis aeromonas [Recovered/Resolved]
  - Urinary tract infection [Recovered/Resolved]

NARRATIVE: CASE EVENT DATE: 20250901
